FAERS Safety Report 13291282 (Version 1)
Quarter: 2017Q1

REPORT INFORMATION
  Report Type: Report from Study
  Country: PK (occurrence: PK)
  Receive Date: 20170303
  Receipt Date: 20170303
  Transmission Date: 20170428
  Serious: Yes (Death, Other)
  Sender: FDA-Public Use
  Company Number: PHHY2017PK030626

PATIENT
  Sex: Female
  Weight: 55 kg

DRUGS (1)
  1. GLIVEC [Suspect]
     Active Substance: IMATINIB MESYLATE
     Indication: HYPEREOSINOPHILIC SYNDROME
     Dosage: 400 MG, QID
     Route: 048
     Dates: start: 20150928

REACTIONS (7)
  - Pulse abnormal [Unknown]
  - Left ventricular failure [Unknown]
  - Crepitations [Unknown]
  - Blood pressure systolic decreased [Unknown]
  - White blood cell count increased [Unknown]
  - Cardio-respiratory arrest [Fatal]
  - Anaemia [Unknown]
